FAERS Safety Report 8090570 (Version 3)
Quarter: 2013Q4

REPORT INFORMATION
  Report Type: Spontaneous
  Country: US (occurrence: US)
  Receive Date: 20110815
  Receipt Date: 20131030
  Transmission Date: 20140711
  Serious: Yes (Hospitalization)
  Sender: FDA-Public Use
  Company Number: US-B.I. PHARMACEUTICALS,INC./RIDGEFIELD-2011-BP-17626BP

PATIENT
  Age: 78 Year
  Sex: Female
  Weight: 58.97 kg

DRUGS (5)
  1. PRADAXA [Suspect]
     Indication: ATRIAL FIBRILLATION
     Dosage: 300 MG
     Dates: start: 20110422, end: 20110704
  2. DILTIAZEM ER [Concomitant]
     Dosage: 300 MG
  3. LISINOPRIL [Concomitant]
     Dosage: 10 MG
  4. ZOCOR [Concomitant]
     Dosage: 40 MG
  5. ZOLOFT [Concomitant]
     Dosage: 50 MG

REACTIONS (4)
  - Gastrointestinal haemorrhage [Recovered/Resolved]
  - Haemorrhagic anaemia [Recovered/Resolved]
  - Coagulopathy [Unknown]
  - Renal failure acute [Recovered/Resolved]
